FAERS Safety Report 12902834 (Version 2)
Quarter: 2016Q4

REPORT INFORMATION
  Report Type: Spontaneous
  Country: US (occurrence: US)
  Receive Date: 20161102
  Receipt Date: 20161207
  Transmission Date: 20170207
  Serious: Yes (Other)
  Sender: FDA-Public Use
  Company Number: US-JNJFOC-20161004155

PATIENT
  Sex: Male

DRUGS (5)
  1. LIALDA [Concomitant]
     Active Substance: MESALAMINE
     Indication: GASTROINTESTINAL DISORDER THERAPY
     Route: 065
     Dates: start: 201503
  2. REMICADE [Suspect]
     Active Substance: INFLIXIMAB
     Indication: COLITIS
     Route: 042
     Dates: start: 20161003
  3. REMICADE [Suspect]
     Active Substance: INFLIXIMAB
     Indication: COLITIS
     Route: 042
     Dates: start: 201509
  4. UCERIS [Concomitant]
     Active Substance: BUDESONIDE
     Indication: STEROID THERAPY
     Route: 065
     Dates: start: 20160924
  5. ZITHROMAX [Concomitant]
     Active Substance: AZITHROMYCIN DIHYDRATE
     Indication: ANTIBIOTIC THERAPY
     Route: 065
     Dates: start: 2016

REACTIONS (7)
  - Sinusitis [Recovered/Resolved]
  - Drug level below therapeutic [Not Recovered/Not Resolved]
  - Clostridium difficile infection [Recovered/Resolved]
  - Drug ineffective [Not Recovered/Not Resolved]
  - Off label use [Unknown]
  - Colitis [Not Recovered/Not Resolved]
  - Product use issue [Unknown]

NARRATIVE: CASE EVENT DATE: 2015
